FAERS Safety Report 4371560-4 (Version None)
Quarter: 2004Q2

REPORT INFORMATION
  Report Type: 
  Country: None (occurrence: None)
  Receive Date: 20040607
  Receipt Date: 20040525
  Transmission Date: 20050107
  Serious: Yes (Hospitalization, Other)
  Sender: FDA-Public Use
  Company Number: JP-JNJFOC-20040301138

PATIENT
  Sex: Female
  Weight: 45 kg

DRUGS (13)
  1. REMICADE [Suspect]
     Route: 041
     Dates: start: 20030730
  2. REMICADE [Suspect]
     Route: 041
     Dates: start: 20030730
  3. REMICADE [Suspect]
     Route: 041
     Dates: start: 20030730
  4. REMICADE [Suspect]
     Route: 041
     Dates: start: 20030730
  5. REMICADE [Suspect]
     Indication: RHEUMATOID ARTHRITIS
     Route: 041
     Dates: start: 20030730
  6. PREDONINE [Suspect]
     Indication: RHEUMATOID ARTHRITIS
     Dosage: 1 5MG TABLET A DAY
     Route: 049
  7. RHEUMATREX [Concomitant]
     Route: 049
  8. RHEUMATREX [Concomitant]
     Route: 049
  9. RHEUMATREX [Concomitant]
     Route: 049
  10. RHEUMATREX [Concomitant]
     Indication: RHEUMATOID ARTHRITIS
     Route: 049
  11. INH [Concomitant]
     Indication: PROPHYLAXIS
     Route: 065
     Dates: start: 20031014, end: 20040114
  12. LOXONIN [Concomitant]
     Indication: RHEUMATOID ARTHRITIS
     Route: 049
  13. SELBEX [Concomitant]
     Indication: RHEUMATOID ARTHRITIS
     Route: 049

REACTIONS (2)
  - BACK PAIN [None]
  - SPINAL FRACTURE [None]
